FAERS Safety Report 4833891-0 (Version None)
Quarter: 2005Q4

REPORT INFORMATION
  Report Type: 
  Country: None (occurrence: None)
  Receive Date: 20051122
  Receipt Date: 20051019
  Transmission Date: 20060501
  Serious: Yes (Hospitalization)
  Sender: FDA-Public Use
  Company Number: US-BOEHRINGER INGELHEIM PHARMACEUTICALS, INC.-2005-BP-18663BP

PATIENT
  Age: 73 Year
  Sex: Male
  Weight: 77.1 kg

DRUGS (13)
  1. MICARDIS [Suspect]
     Indication: HYPERTENSION
  2. MICARDIS HCT [Suspect]
     Indication: HYPERTENSION
     Dates: start: 20050922, end: 20050923
  3. ACCUPRIL [Concomitant]
  4. CARDIZEM [Concomitant]
  5. CLONIDINE [Concomitant]
  6. COLCHICINE [Concomitant]
  7. COUMADIN [Concomitant]
  8. DILANTIN [Concomitant]
  9. FAMOTIDINE [Concomitant]
  10. LASIX [Concomitant]
  11. LOMOTIL [Concomitant]
  12. TOPROL-XL [Concomitant]
  13. ZOLOFT [Concomitant]

REACTIONS (4)
  - HEADACHE [None]
  - HYPERTENSION [None]
  - NAUSEA [None]
  - VOMITING [None]
